FAERS Safety Report 17434198 (Version 1)
Quarter: 2020Q1

REPORT INFORMATION
  Report Type: Spontaneous
  Country: US (occurrence: US)
  Receive Date: 20200219
  Receipt Date: 20200219
  Transmission Date: 20200409
  Serious: Yes (Hospitalization, Other)
  Sender: FDA-Public Use
  Company Number: US-GILEAD-2020-0451224

PATIENT
  Sex: Male

DRUGS (8)
  1. PRAZOSIN HYDROCHLORIDE. [Concomitant]
     Active Substance: PRAZOSIN HYDROCHLORIDE
  2. TRAZODONE [Concomitant]
     Active Substance: TRAZODONE HYDROCHLORIDE
  3. SOFOSBUVIR;VELPATASVIR [Suspect]
     Active Substance: SOFOSBUVIR\VELPATASVIR
     Indication: CHRONIC HEPATITIS C
     Dosage: 1 DOSAGE FORM, QD
     Route: 048
     Dates: start: 202002
  4. OLANZAPINE. [Concomitant]
     Active Substance: OLANZAPINE
  5. MIRTAZAPINE. [Concomitant]
     Active Substance: MIRTAZAPINE
  6. FLUOXETINE [Concomitant]
     Active Substance: FLUOXETINE HYDROCHLORIDE
  7. NICOTINE. [Concomitant]
     Active Substance: NICOTINE
  8. BENZTROPINE [BENZATROPINE] [Concomitant]
     Active Substance: BENZTROPINE

REACTIONS (2)
  - Cardiac pacemaker insertion [Recovering/Resolving]
  - Insomnia [Recovered/Resolved]
